FAERS Safety Report 11122105 (Version 2)
Quarter: 2015Q3

REPORT INFORMATION
  Report Type: Report from Study
  Country: US (occurrence: US)
  Receive Date: 20150519
  Receipt Date: 20150804
  Transmission Date: 20151125
  Serious: Yes (Other)
  Sender: FDA-Public Use
  Company Number: US-SA-2013SA110524

PATIENT
  Age: 49 Year
  Sex: Female

DRUGS (4)
  1. AUBAGIO [Suspect]
     Active Substance: TERIFLUNOMIDE
     Indication: MULTIPLE SCLEROSIS
     Route: 065
     Dates: start: 201308
  2. AUBAGIO [Suspect]
     Active Substance: TERIFLUNOMIDE
     Indication: MULTIPLE SCLEROSIS
     Route: 065
     Dates: start: 201407, end: 201409
  3. AUBAGIO [Suspect]
     Active Substance: TERIFLUNOMIDE
     Indication: MULTIPLE SCLEROSIS
     Route: 048
     Dates: start: 201409, end: 20150727
  4. AUBAGIO [Suspect]
     Active Substance: TERIFLUNOMIDE
     Indication: MULTIPLE SCLEROSIS
     Route: 065
     Dates: start: 20121024

REACTIONS (10)
  - Hypoaesthesia [Unknown]
  - Nausea [Not Recovered/Not Resolved]
  - Hypoaesthesia oral [Unknown]
  - Myalgia [Unknown]
  - Vitamin D decreased [Unknown]
  - Fatigue [Not Recovered/Not Resolved]
  - Thyroid function test abnormal [Unknown]
  - Hyperthyroidism [Unknown]
  - Drug dose omission [Unknown]
  - Asthenia [Unknown]
